FAERS Safety Report 8184639-6 (Version None)
Quarter: 2012Q1

REPORT INFORMATION
  Report Type: 
  Country: None (occurrence: None)
  Receive Date: 20120305
  Receipt Date: 20120229
  Transmission Date: 20120608
  Serious: Yes (Other)
  Sender: FDA-Public Use
  Company Number: US-PFIZER INC-2012055580

PATIENT
  Age: 71 Year
  Sex: Male

DRUGS (4)
  1. METFORMIN [Concomitant]
  2. VERAPAMIL HCL [Suspect]
     Dosage: 80 MG, 4X/DAY
     Route: 065
  3. GLIPIZIDE [Concomitant]
  4. PROTOPIC [Interacting]
     Indication: RASH
     Dosage: 0.1 %, UNK
     Route: 061
     Dates: start: 20110816, end: 20110901

REACTIONS (6)
  - DRUG INTERACTION [None]
  - DYSPNOEA [None]
  - CARDIAC FLUTTER [None]
  - PALPITATIONS [None]
  - EXTRASYSTOLES [None]
  - ATRIAL FIBRILLATION [None]
